FAERS Safety Report 5069456-8 (Version None)
Quarter: 2006Q3

REPORT INFORMATION
  Report Type: 
  Country: None (occurrence: None)
  Receive Date: 20060731
  Receipt Date: 20060719
  Transmission Date: 20061208
  Serious: Yes (Hospitalization)
  Sender: FDA-Public Use
  Company Number: 200611954BCC

PATIENT
  Age: 57 Year
  Sex: Male
  Weight: 104.3273 kg

DRUGS (10)
  1. ALEVE [Suspect]
     Indication: OSTEOARTHRITIS
     Dosage: 880 MG TOTAL DAILY ORAL ; 440 MG TOTAL DAILY ORAL
     Route: 048
     Dates: start: 20020101, end: 20041101
  2. NEXIUM [Concomitant]
  3. BENICAR [Concomitant]
  4. HYDROCODONE BITARTRATE [Concomitant]
  5. ECOTRIN [Concomitant]
  6. VIOXX [Concomitant]
  7. MULTIVITAMIN [Concomitant]
  8. FISH OIL [Concomitant]
  9. IRON [Concomitant]
  10. PRILOSEC [Concomitant]

REACTIONS (17)
  - ARTERIAL OCCLUSIVE DISEASE [None]
  - BACK INJURY [None]
  - DIABETES MELLITUS [None]
  - DIZZINESS [None]
  - GASTRIC BYPASS [None]
  - GASTRIC ULCER [None]
  - HYPERTENSION [None]
  - INCORRECT DOSE ADMINISTERED [None]
  - INCORRECT DRUG ADMINISTRATION DURATION [None]
  - INFECTION [None]
  - INTERVERTEBRAL DISC DISORDER [None]
  - LOSS OF CONSCIOUSNESS [None]
  - NECROSIS [None]
  - NERVE COMPRESSION [None]
  - POST PROCEDURAL COMPLICATION [None]
  - SELF-MEDICATION [None]
  - WEIGHT INCREASED [None]
